FAERS Safety Report 9797694 (Version 2)
Quarter: 2014Q1

REPORT INFORMATION
  Report Type: Spontaneous
  Country: US (occurrence: US)
  Receive Date: 20140106
  Receipt Date: 20140127
  Transmission Date: 20141002
  Serious: Yes (Other)
  Sender: FDA-Public Use
  Company Number: US-PFIZER INC-2014001857

PATIENT
  Age: 38 Year
  Sex: Male
  Weight: 125 kg

DRUGS (2)
  1. DILANTIN-125 [Suspect]
     Dosage: 300MG IN MORNING, 200MG IN NOON AND 200MG IN NIGHT, 3X/DAY
     Dates: start: 200401
  2. AMLODIPINE [Concomitant]
     Indication: HYPERTENSION
     Dosage: 5 MG, DAILY

REACTIONS (3)
  - Coma [Unknown]
  - Drug level decreased [Unknown]
  - Memory impairment [Unknown]
